FAERS Safety Report 6333092-3 (Version None)
Quarter: 2009Q3

REPORT INFORMATION
  Report Type: 
  Country: None (occurrence: None)
  Receive Date: 20090828
  Receipt Date: 20090821
  Transmission Date: 20100115
  Serious: Yes (Other)
  Sender: FDA-Public Use
  Company Number: GB-JNJFOC-20090709982

PATIENT
  Sex: Male

DRUGS (5)
  1. REMICADE [Suspect]
     Dosage: TENTH DOSE
     Route: 042
  2. REMICADE [Suspect]
     Indication: ANKYLOSING SPONDYLITIS
     Dosage: 9 INFUSIONS ON UNSPECIFIED DATES
     Route: 042
  3. PIRITON [Concomitant]
     Indication: PROPHYLAXIS
     Route: 048
  4. AZATHIOPRINE [Concomitant]
  5. FOLIC ACID [Concomitant]
     Dosage: 6 DAYS OUT OF 7

REACTIONS (8)
  - FEELING COLD [None]
  - FEELING HOT [None]
  - HYPERHIDROSIS [None]
  - INFUSION RELATED REACTION [None]
  - MALAISE [None]
  - OCULAR HYPERAEMIA [None]
  - RASH [None]
  - VOMITING [None]
